FAERS Safety Report 8878366 (Version 1)
Quarter: 2012Q4

REPORT INFORMATION
  Report Type: 
  Country: US (occurrence: US)
  Receive Date: 20121025
  Receipt Date: 20121025
  Transmission Date: 20130627
  Serious: No
  Sender: FDA-Public Use
  Company Number: US-AMGEN-USASP2012022294

PATIENT
  Sex: Male

DRUGS (5)
  1. ENBREL [Suspect]
     Indication: PRODUCT USED FOR UNKNOWN INDICATION
     Dosage: 50 mg, qwk
     Route: 058
  2. ATENOLOL [Concomitant]
     Dosage: 25 mg, UNK
  3. BENADRYL                           /00000402/ [Concomitant]
     Dosage: 25 mg, UNK
  4. STOOL SOFTENER [Concomitant]
     Dosage: 100 mg, UNK
  5. MELATONIN [Concomitant]
     Dosage: 1 mg, UNK

REACTIONS (1)
  - Dizziness [Unknown]
